FAERS Safety Report 12203285 (Version 1)
Quarter: 2016Q1

REPORT INFORMATION
  Report Type: Spontaneous
  Country: GB (occurrence: GB)
  Receive Date: 20160323
  Receipt Date: 20160323
  Transmission Date: 20160526
  Serious: Yes (Other)
  Sender: FDA-Public Use
  Company Number: GB-ACCORD-039024

PATIENT
  Age: 32 Year
  Sex: Male
  Weight: 70 kg

DRUGS (9)
  1. ACICLOVIR [Concomitant]
     Active Substance: ACYCLOVIR
  2. CYCLIZINE [Concomitant]
     Active Substance: CYCLIZINE
  3. MIDAZOLAM [Concomitant]
     Active Substance: MIDAZOLAM\MIDAZOLAM HYDROCHLORIDE
  4. DIAMORPHINE [Concomitant]
     Active Substance: DIACETYLMORPHINE
  5. NYSTATIN/NYSTATIN/LIPOSOME [Concomitant]
  6. LEVETIRACETAM. [Suspect]
     Active Substance: LEVETIRACETAM
     Indication: CLONIC CONVULSION
     Route: 058
     Dates: start: 20160220
  7. DEXAMETHASONE. [Concomitant]
     Active Substance: DEXAMETHASONE
  8. DIPROBASE [Concomitant]
     Active Substance: CHLOROCRESOL
  9. CEFTRIAXONE. [Concomitant]
     Active Substance: CEFTRIAXONE

REACTIONS (1)
  - Infusion site vesicles [Recovered/Resolved with Sequelae]

NARRATIVE: CASE EVENT DATE: 20160220
